FAERS Safety Report 12550358 (Version 2)
Quarter: 2016Q3

REPORT INFORMATION
  Report Type: Spontaneous
  Country: DE (occurrence: DE)
  Receive Date: 20160712
  Receipt Date: 20160729
  Transmission Date: 20161109
  Serious: Yes (Other)
  Sender: FDA-Public Use
  Company Number: DE-TEVA-674031GER

PATIENT
  Age: 60 Year
  Sex: Male

DRUGS (2)
  1. SILDENAFIL ABZ 100 MG FILMTABLETTEN [Suspect]
     Active Substance: SILDENAFIL
     Dosage: TOTAL DOSE: 2 TABLETS (200 MILLIGRAM) FROM THE CURRENT BATCH
     Route: 048
     Dates: start: 20160624
  2. SILDENAFIL HORMOSAN 100 MG [Concomitant]
     Dosage: OTHERWISE THE PATIENT TOOK THIS MEDICATION
     Route: 048

REACTIONS (4)
  - Drug ineffective [Recovered/Resolved]
  - Product quality issue [Unknown]
  - Angina pectoris [Recovered/Resolved]
  - Muscle spasms [Recovered/Resolved]

NARRATIVE: CASE EVENT DATE: 20160624
